FAERS Safety Report 25828342 (Version 1)
Quarter: 2025Q3

REPORT INFORMATION
  Report Type: Report from Study
  Country: EU (occurrence: EU)
  Receive Date: 20250921
  Receipt Date: 20250921
  Transmission Date: 20251020
  Serious: Yes (Hospitalization)
  Sender: ABBVIE
  Company Number: EU-ABBVIE-6434908

PATIENT
  Age: 77 Year
  Sex: Female

DRUGS (14)
  1. HUMIRA [Suspect]
     Active Substance: ADALIMUMAB
     Indication: Colitis ulcerative
     Route: 058
     Dates: start: 20071221, end: 20161101
  2. HUMIRA [Suspect]
     Active Substance: ADALIMUMAB
     Route: 058
     Dates: start: 20161201, end: 20180723
  3. HUMIRA [Suspect]
     Active Substance: ADALIMUMAB
     Route: 058
     Dates: start: 20180723, end: 20190725
  4. HUMIRA [Suspect]
     Active Substance: ADALIMUMAB
     Route: 058
     Dates: start: 20190808, end: 201912
  5. HULIO [Concomitant]
     Active Substance: ADALIMUMAB-FKJP
     Indication: Colitis ulcerative
     Route: 058
     Dates: start: 202112
  6. AMERIDE [Concomitant]
     Indication: Hypertension
     Dosage: DOSE 5/50MG, 2 DAYS BY WEEK
     Route: 048
     Dates: start: 20080104
  7. BECLOMETHASONE DIPROPIONATE [Concomitant]
     Active Substance: BECLOMETHASONE DIPROPIONATE
     Indication: Asthma
     Dosage: DOSE 87 MCG
     Route: 055
     Dates: start: 20230928
  8. MESALAMINE [Concomitant]
     Active Substance: MESALAMINE
     Indication: Colitis ulcerative
     Route: 048
     Dates: start: 2000
  9. DAFLON [Concomitant]
     Indication: Hypertension
     Route: 048
     Dates: start: 20081002
  10. DIUREX [Concomitant]
     Indication: Hypertension
     Route: 048
     Dates: start: 20080619
  11. LEVOTHYROXINE SODIUM [Concomitant]
     Active Substance: LEVOTHYROXINE SODIUM
     Indication: Hypothyroidism
     Dosage: DOSE 100MCG
     Route: 048
     Dates: start: 19970129
  12. FORMOTEROL FUMARATE [Concomitant]
     Active Substance: FORMOTEROL FUMARATE
     Indication: Asthma
     Dosage: DOSE 5MCG
     Route: 055
     Dates: start: 20230928
  13. GLYCOPYRRONIUM [Concomitant]
     Active Substance: GLYCOPYRRONIUM
     Indication: Asthma
     Route: 055
     Dates: start: 20230928
  14. AZITHROMYCIN [Concomitant]
     Active Substance: AZITHROMYCIN
     Indication: Asthma
     Route: 048
     Dates: start: 20231025

REACTIONS (1)
  - Osteoarthritis [Recovered/Resolved]

NARRATIVE: CASE EVENT DATE: 20250501
